FAERS Safety Report 5772730-0 (Version None)
Quarter: 2008Q2

REPORT INFORMATION
  Report Type: 
  Country: None (occurrence: None)
  Receive Date: 20080613
  Receipt Date: 20080603
  Transmission Date: 20081010
  Serious: Yes (Death)
  Sender: FDA-Public Use
  Company Number: US-PFIZER INC-2006078362

PATIENT
  Sex: Male
  Weight: 98.6 kg

DRUGS (8)
  1. SUTENT [Suspect]
     Indication: METASTATIC RENAL CELL CARCINOMA
     Route: 048
     Dates: start: 20060504, end: 20060531
  2. INTERFERON [Suspect]
     Indication: METASTATIC RENAL CELL CARCINOMA
     Dosage: TEXT:3MU
     Route: 058
     Dates: start: 20060504, end: 20060510
  3. INTERFERON [Suspect]
     Dosage: TEXT:6MU
     Route: 058
     Dates: start: 20060511, end: 20060531
  4. TOPROL-XL [Concomitant]
     Route: 048
     Dates: start: 20051027, end: 20060621
  5. LIPITOR [Concomitant]
     Route: 048
     Dates: start: 20051027, end: 20060621
  6. ASPIRIN [Concomitant]
     Route: 048
     Dates: start: 20051027, end: 20060621
  7. HYDROCHLOROTHIAZIDE [Concomitant]
     Route: 048
     Dates: start: 20060613, end: 20060621
  8. VITAMIN CAP [Concomitant]
     Route: 048
     Dates: start: 20051027, end: 20060621

REACTIONS (1)
  - MYOCARDIAL INFARCTION [None]
